FAERS Safety Report 25865733 (Version 1)
Quarter: 2025Q3

REPORT INFORMATION
  Report Type: Spontaneous
  Country: US (occurrence: US)
  Receive Date: 20250930
  Receipt Date: 20250930
  Transmission Date: 20251020
  Serious: Yes (Other)
  Sender: AMGEN
  Company Number: US-AMGEN-USASP2025192369

PATIENT

DRUGS (7)
  1. PREDNISONE [Suspect]
     Active Substance: PREDNISONE
     Indication: T-cell lymphoma
     Route: 065
  2. PREDNISONE [Suspect]
     Active Substance: PREDNISONE
     Route: 065
  3. CYCLOPHOSPHAMIDE [Concomitant]
     Active Substance: CYCLOPHOSPHAMIDE
     Indication: T-cell lymphoma
  4. CYCLOPHOSPHAMIDE [Concomitant]
     Active Substance: CYCLOPHOSPHAMIDE
  5. DOXORUBICIN [Concomitant]
     Active Substance: DOXORUBICIN
     Indication: T-cell lymphoma
  6. DOXORUBICIN [Concomitant]
     Active Substance: DOXORUBICIN
  7. VINCRISTINE [Concomitant]
     Active Substance: VINCRISTINE
     Indication: T-cell lymphoma

REACTIONS (5)
  - Respiratory failure [Unknown]
  - Sepsis [Unknown]
  - Pneumocystis jirovecii pneumonia [Unknown]
  - Renal injury [Unknown]
  - Urinary tract infection pseudomonal [Unknown]
